FAERS Safety Report 7668737-9 (Version None)
Quarter: 2011Q3

REPORT INFORMATION
  Report Type: 
  Country: None (occurrence: None)
  Receive Date: 20110808
  Receipt Date: 20110722
  Transmission Date: 20111222
  Serious: Yes (Other)
  Sender: FDA-Public Use
  Company Number: CA-UCBSA-037545

PATIENT
  Sex: Female
  Weight: 66 kg

DRUGS (5)
  1. CIMZIA [Suspect]
     Indication: RHEUMATOID ARTHRITIS
     Route: 058
     Dates: start: 20100813, end: 20110715
  2. FOSAMAX [Concomitant]
     Indication: OSTEOPOROSIS
     Route: 048
  3. METHOTREXATE [Suspect]
     Indication: RHEUMATOID ARTHRITIS
     Route: 058
     Dates: start: 20050401
  4. IMOVANE [Concomitant]
     Indication: PAIN
     Dosage: 7.5 MG AS NEEDED
     Route: 048
  5. NOVOTRYPTIN [Concomitant]
     Indication: SLEEP DISORDER
     Route: 048

REACTIONS (6)
  - MALAISE [None]
  - WEIGHT DECREASED [None]
  - COUGH [None]
  - CHEST X-RAY ABNORMAL [None]
  - CHEST PAIN [None]
  - BACK PAIN [None]
